FAERS Safety Report 6686841-9 (Version None)
Quarter: 2010Q2

REPORT INFORMATION
  Report Type: 
  Country: None (occurrence: None)
  Receive Date: 20100416
  Receipt Date: 20100416
  Transmission Date: 20101027
  Serious: Yes (Hospitalization)
  Sender: FDA-Public Use
  Company Number: None

PATIENT
  Sex: Female
  Weight: 77.1115 kg

DRUGS (4)
  1. PAXIL CR [Suspect]
     Indication: DEPRESSION
     Dosage: 1 TABLET DAILY N/A
     Dates: start: 20090708
  2. PAXIL CR [Suspect]
     Indication: SOCIAL PHOBIA
     Dosage: 1 TABLET DAILY N/A
     Dates: start: 20090708
  3. PAXIL CR [Suspect]
     Indication: DEPRESSION
     Dosage: 1 TABLET DAILY N/A
     Dates: start: 20090817
  4. PAXIL CR [Suspect]
     Indication: SOCIAL PHOBIA
     Dosage: 1 TABLET DAILY N/A
     Dates: start: 20090817

REACTIONS (7)
  - ABDOMINAL DISCOMFORT [None]
  - DEHYDRATION [None]
  - ECONOMIC PROBLEM [None]
  - HEART RATE INCREASED [None]
  - MALAISE [None]
  - MIGRAINE [None]
  - VOMITING [None]
